FAERS Safety Report 9222555 (Version 1)
Quarter: 2013Q1

REPORT INFORMATION
  Report Type: Spontaneous
  Country: US (occurrence: US)
  Receive Date: 20120914
  Receipt Date: 20120914
  Transmission Date: 20140127
  Serious: Yes (Other)
  Sender: FDA-Public Use
  Company Number: JPI-P-013477

PATIENT
  Age: 53 Year
  Sex: Female
  Weight: 66.23 kg

DRUGS (14)
  1. XYREM (500 MG/ML SOLUTION)(SODIUM OXYBATE) [Suspect]
     Indication: CATAPLEXY
     Dosage: TWO DOSES OF 2.25 GM TAKEN NIGHTLY/AT BEDTIME.
     Route: 048
     Dates: start: 20101224
  2. FLUTICASONE PROPIONATE [Concomitant]
  3. ALBUTEROL SULFATE [Concomitant]
  4. METOPROLOL [Concomitant]
  5. METHOCARBAMOL [Concomitant]
  6. BABY ASPIRIN [Concomitant]
  7. ARMODAFINIL [Concomitant]
  8. CORAL CALCIUM [Concomitant]
  9. VITAMIN D3 [Concomitant]
  10. LORATADINE [Concomitant]
  11. HYDROCHLOROTHIAZIDE [Concomitant]
  12. MULTIVITAMINS [Concomitant]
  13. NIFEDIPINE [Concomitant]
  14. CONVALLARIA MAJALIS\CRATAEGUS LAEVIGATA LEAF\PROXYPHYLLINE [Concomitant]

REACTIONS (9)
  - Hypertension [None]
  - Labile hypertension [None]
  - Condition aggravated [None]
  - Weight decreased [None]
  - Decreased appetite [None]
  - Change of bowel habit [None]
  - Snoring [None]
  - Tinnitus [None]
  - Nausea [None]
